FAERS Safety Report 9832810 (Version 2)
Quarter: 2014Q1

REPORT INFORMATION
  Report Type: Report from Study
  Country: IT (occurrence: IT)
  Receive Date: 20140121
  Receipt Date: 20140203
  Transmission Date: 20141002
  Serious: Yes (Death, Hospitalization)
  Sender: FDA-Public Use
  Company Number: IT-GLAXOSMITHKLINE-B0961305A

PATIENT
  Age: 53 Year
  Sex: Male
  Weight: 68 kg

DRUGS (5)
  1. DABRAFENIB [Suspect]
     Indication: METASTATIC MALIGNANT MELANOMA
     Route: 048
     Dates: start: 20130718, end: 20131028
  2. PANTORC [Concomitant]
     Indication: PROPHYLAXIS
     Dosage: 40MG PER DAY
     Route: 048
  3. DELTACORTENE [Concomitant]
     Indication: CHOLANGITIS SCLEROSING
     Route: 048
  4. URSOBIL [Concomitant]
     Indication: CHOLANGITIS SCLEROSING
     Dosage: 250MG THREE TIMES PER DAY
     Route: 048
  5. ZYLORIC [Concomitant]
     Dosage: 300MG PER DAY
     Route: 048

REACTIONS (2)
  - Disease progression [Fatal]
  - Metastases to liver [Fatal]
